FAERS Safety Report 9966592 (Version 2)
Quarter: 2014Q2

REPORT INFORMATION
  Report Type: Report from Study
  Country: PR (occurrence: PR)
  Receive Date: 20140305
  Receipt Date: 20140429
  Transmission Date: 20141212
  Serious: Yes (Other)
  Sender: FDA-Public Use
  Company Number: PR-ABBVIE-13P-131-1125139-00

PATIENT
  Sex: Female
  Weight: 47.22 kg

DRUGS (1)
  1. HUMIRA [Suspect]
     Indication: RHEUMATOID ARTHRITIS
     Route: 058
     Dates: start: 201210

REACTIONS (2)
  - Cervix disorder [Not Recovered/Not Resolved]
  - Unevaluable event [Unknown]
